FAERS Safety Report 8145240-3 (Version None)
Quarter: 2012Q1

REPORT INFORMATION
  Report Type: 
  Country: None (occurrence: None)
  Receive Date: 20120217
  Receipt Date: 20120215
  Transmission Date: 20120608
  Serious: No
  Sender: FDA-Public Use
  Company Number: US-PFIZER INC-2012041402

PATIENT
  Sex: Female
  Weight: 58.957 kg

DRUGS (1)
  1. IBUPROFEN (ADVIL) [Suspect]
     Indication: OSTEOARTHRITIS
     Dosage: 400 MG, 2X/DAY
     Route: 048
     Dates: start: 20120210, end: 20120215

REACTIONS (3)
  - ABDOMINAL PAIN UPPER [None]
  - DYSGEUSIA [None]
  - SALIVARY HYPERSECRETION [None]
